FAERS Safety Report 10057179 (Version 1)
Quarter: 2014Q2

REPORT INFORMATION
  Report Type: Spontaneous
  Country: US (occurrence: US)
  Receive Date: 20140403
  Receipt Date: 20140403
  Transmission Date: 20141212
  Serious: Yes (Other)
  Sender: FDA-Public Use
  Company Number: US-ASTRAZENECA-2014SE21118

PATIENT
  Age: 40 Year
  Sex: Male

DRUGS (14)
  1. SEROQUEL [Suspect]
     Indication: DEPRESSION
     Route: 048
  2. SEROQUEL [Suspect]
     Indication: POST-TRAUMATIC STRESS DISORDER
     Route: 048
  3. ZOLOFT (PFIZER) [Suspect]
     Indication: DEPRESSION
     Route: 065
  4. ZOLOFT (PFIZER) [Suspect]
     Indication: POST-TRAUMATIC STRESS DISORDER
     Route: 065
  5. DEPAKOTE [Suspect]
     Indication: DEPRESSION
     Route: 065
  6. DEPAKOTE [Suspect]
     Indication: POST-TRAUMATIC STRESS DISORDER
     Route: 065
  7. XANAX PFIZER [Suspect]
     Indication: DEPRESSION
     Route: 065
  8. XANAX PFIZER [Suspect]
     Indication: POST-TRAUMATIC STRESS DISORDER
     Route: 065
  9. CELEBREX [Suspect]
     Indication: DEPRESSION
     Route: 065
  10. CELEBREX [Suspect]
     Indication: POST-TRAUMATIC STRESS DISORDER
     Route: 065
  11. WELLBUTRIN [Suspect]
     Indication: DEPRESSION
     Route: 065
  12. WELLBUTRIN [Suspect]
     Indication: POST-TRAUMATIC STRESS DISORDER
     Route: 065
  13. LITHIUM [Suspect]
     Indication: DEPRESSION
     Route: 065
  14. LITHIUM [Suspect]
     Indication: POST-TRAUMATIC STRESS DISORDER
     Route: 065

REACTIONS (6)
  - Homicidal ideation [Unknown]
  - Suicidal ideation [Unknown]
  - Circumstance or information capable of leading to medication error [Not Recovered/Not Resolved]
  - Hypersomnia [Unknown]
  - Impaired work ability [Unknown]
  - Decreased activity [Unknown]
